FAERS Safety Report 15987239 (Version 3)
Quarter: 2019Q2

REPORT INFORMATION
  Report Type: Report from Study
  Country: US (occurrence: US)
  Receive Date: 20190220
  Receipt Date: 20190430
  Transmission Date: 20190711
  Serious: Yes (Hospitalization, Other)
  Sender: FDA-Public Use
  Company Number: US-BAYER-2019-031684

PATIENT
  Age: 56 Year
  Sex: Male

DRUGS (2)
  1. VITRAKVI [Suspect]
     Active Substance: LAROTRECTINIB
     Indication: MALIGNANT MELANOMA
     Dosage: 100 MG, BID
     Route: 048
     Dates: start: 201701, end: 201904
  2. VITRAKVI [Suspect]
     Active Substance: LAROTRECTINIB
     Indication: MALIGNANT MELANOMA
     Dosage: UNK
     Dates: start: 20190419

REACTIONS (9)
  - Cellulitis [None]
  - Lethargy [Unknown]
  - Off label use [None]
  - Pneumonia [Unknown]
  - Hypotension [None]
  - Lethargy [Unknown]
  - Sepsis [None]
  - Product use in unapproved indication [None]
  - Leukopenia [None]

NARRATIVE: CASE EVENT DATE: 201901
